FAERS Safety Report 12083019 (Version 1)
Quarter: 2016Q1

REPORT INFORMATION
  Report Type: Spontaneous
  Country: US (occurrence: None)
  Receive Date: 20160216
  Receipt Date: 20160216
  Transmission Date: 20160526
  Serious: Yes (Death, Life-Threatening, Hospitalization)
  Sender: FDA-Public Use
  Company Number: None

PATIENT
  Age: 79 Year
  Sex: Male
  Weight: 75 kg

DRUGS (1)
  1. XARELTO [Suspect]
     Active Substance: RIVAROXABAN
     Indication: DEEP VEIN THROMBOSIS
     Dosage: 1 BID ORAL
     Route: 048

REACTIONS (3)
  - Pulmonary haemorrhage [None]
  - Cardiac arrest [None]
  - Pulmonary thrombosis [None]

NARRATIVE: CASE EVENT DATE: 20160211
